FAERS Safety Report 5484028-9 (Version None)
Quarter: 2007Q4

REPORT INFORMATION
  Report Type: 
  Country: None (occurrence: None)
  Receive Date: 20071009
  Receipt Date: 20071009
  Transmission Date: 20080405
  Serious: No
  Sender: FDA-Public Use
  Company Number: None

PATIENT
  Sex: Female
  Weight: 83.2 kg

DRUGS (3)
  1. FLUOROURACIL [Suspect]
     Dosage: 7800 MG
  2. CISPLATIN [Suspect]
     Dosage: 146 MG
  3. ERBITUX [Suspect]
     Dosage: 488 MG

REACTIONS (1)
  - DEEP VEIN THROMBOSIS [None]
